FAERS Safety Report 10539186 (Version 2)
Quarter: 2015Q1

REPORT INFORMATION
  Report Type: Spontaneous
  Country: US (occurrence: US)
  Receive Date: 20141023
  Receipt Date: 20150114
  Transmission Date: 20150720
  Serious: No
  Sender: FDA-Public Use
  Company Number: US-PFIZER INC-2014289106

PATIENT
  Age: 75 Year
  Sex: Male
  Weight: 73 kg

DRUGS (19)
  1. MINERAL OIL. [Concomitant]
     Active Substance: MINERAL OIL
     Indication: CONSTIPATION
     Dosage: UNK
  2. NITROGLYCERIN. [Suspect]
     Active Substance: NITROGLYCERIN
     Indication: CHEST PAIN
     Dosage: 0.4 MG (1 TABLET UNDER THE TONGUE EVERY FIVE MINUTES UP TO 3 TABLETS), AS NEEDED
     Route: 060
     Dates: start: 20140103
  3. WARFARIN [Concomitant]
     Active Substance: WARFARIN
     Indication: ANTICOAGULANT THERAPY
     Dosage: 5 MG, 1X/DAY
  4. TIMOLOL MALEATE. [Concomitant]
     Active Substance: TIMOLOL MALEATE
     Dosage: 1 GTT (IN EACH EYE), 1X/DAY (IN MORNING)
     Route: 047
  5. MELOXICAM. [Concomitant]
     Active Substance: MELOXICAM
     Dosage: 15 MG, 1X/DAY
  6. FINASTERIDE. [Concomitant]
     Active Substance: FINASTERIDE
     Dosage: 5 MG, 1X/DAY
  7. OMEPRAZOLE. [Concomitant]
     Active Substance: OMEPRAZOLE
     Dosage: 40 MG, 1X/DAY
  8. HYDROCHLOROTHIAZIDE. [Concomitant]
     Active Substance: HYDROCHLOROTHIAZIDE
     Dosage: UNK, 1X/DAY
  9. VESICARE [Concomitant]
     Active Substance: SOLIFENACIN SUCCINATE
     Dosage: 10 MG, 1X/DAY
  10. CRANBERRY WITH VITAMIN C [Concomitant]
     Dosage: CRANBERRY 84MG AND VITAMIN C, 1X/DAY
  11. TRUSOPT [Concomitant]
     Active Substance: DORZOLAMIDE HYDROCHLORIDE
     Dosage: 1 GTT (IN EACH EYE), 2X/DAY
     Route: 047
  12. VITAMIN B12 [Concomitant]
     Active Substance: CYANOCOBALAMIN
     Dosage: 500 MG, 1X/DAY
  13. XALATAN [Concomitant]
     Active Substance: LATANOPROST
     Dosage: (XALATAN 125PG) 2.5 ML, UNK (AT NIGHT)
  14. METHENAM HIPP [Concomitant]
     Indication: CYSTITIS
     Dosage: 1 G, UNK
  15. METHENAM HIPP [Concomitant]
     Indication: PROPHYLAXIS
  16. AFEDITAB [Concomitant]
     Indication: HYPERTENSION
     Dosage: 60 MG, 1X/DAY (IN MORNING)
  17. HYDROCODONE BITARTRATE AND ACETAMINOPHEN [Concomitant]
     Active Substance: ACETAMINOPHEN\HYDROCODONE BITARTRATE
     Dosage: [HYDROCODONE 5MG]/[PARACETAMOL 325MG] (THREE TIMES A DAY), AS NEEDED
  18. LYRICA [Concomitant]
     Active Substance: PREGABALIN
     Indication: PAIN
     Dosage: 50 MG, AS NEEDED (THREE TIMES A DAY)
  19. KLOR-CON [Concomitant]
     Active Substance: POTASSIUM CHLORIDE
     Dosage: 10 MG, 1X/DAY

REACTIONS (2)
  - Feeling hot [Recovered/Resolved]
  - Burning sensation [Unknown]

NARRATIVE: CASE EVENT DATE: 20140103
